FAERS Safety Report 25442561 (Version 1)
Quarter: 2025Q2

REPORT INFORMATION
  Report Type: Spontaneous
  Country: US (occurrence: US)
  Receive Date: 20250617
  Receipt Date: 20250617
  Transmission Date: 20250717
  Serious: No
  Sender: STRIDES
  Company Number: None

PATIENT
  Sex: Male

DRUGS (1)
  1. HYDROCORTISONE [Suspect]
     Active Substance: HYDROCORTISONE
     Indication: Crohn^s disease
     Route: 061

REACTIONS (1)
  - Rash [Unknown]
